FAERS Safety Report 5668974-9 (Version None)
Quarter: 2008Q1

REPORT INFORMATION
  Report Type: 
  Country: None (occurrence: None)
  Receive Date: 20080312
  Receipt Date: 20080312
  Transmission Date: 20080703
  Serious: No
  Sender: FDA-Public Use
  Company Number: None

PATIENT
  Age: 45 Year
  Sex: Male
  Weight: 102.0593 kg

DRUGS (2)
  1. CLOBETASOL PROPIONATE [Suspect]
     Indication: ACRODERMATITIS
     Dosage: 5 GRAMS TWICE DAILY TRANSDERMAL PRN
     Route: 062
     Dates: start: 19850101, end: 20080101
  2. TEMOVATE [Suspect]

REACTIONS (2)
  - DRUG INEFFECTIVE [None]
  - THERAPEUTIC RESPONSE UNEXPECTED WITH DRUG SUBSTITUTION [None]
